FAERS Safety Report 6068722-7 (Version None)
Quarter: 2009Q1

REPORT INFORMATION
  Report Type: 
  Country: None (occurrence: None)
  Receive Date: 20090206
  Receipt Date: 20090205
  Transmission Date: 20090719
  Serious: Yes (Other)
  Sender: FDA-Public Use
  Company Number: B0557665A

PATIENT
  Age: 8 Year

DRUGS (1)
  1. RELENZA [Suspect]
     Route: 055

REACTIONS (2)
  - BODY TEMPERATURE DECREASED [None]
  - DELIRIUM [None]
